FAERS Safety Report 5514457-6 (Version None)
Quarter: 2007Q4

REPORT INFORMATION
  Report Type: 
  Country: None (occurrence: None)
  Receive Date: 20071113
  Receipt Date: 20070530
  Transmission Date: 20080405
  Serious: No
  Sender: FDA-Public Use
  Company Number: A0653514A

PATIENT
  Age: 67 Year
  Sex: Female

DRUGS (4)
  1. COREG [Suspect]
     Dosage: 6.25TAB TWICE PER DAY
     Route: 048
  2. DIGITALIS TAB [Concomitant]
  3. COZAAR [Concomitant]
  4. VITAMIN B [Concomitant]

REACTIONS (2)
  - ALOPECIA [None]
  - DIARRHOEA [None]
